FAERS Safety Report 20555027 (Version 1)
Quarter: 2022Q1

REPORT INFORMATION
  Report Type: Report from Study
  Country: US (occurrence: US)
  Receive Date: 20220304
  Receipt Date: 20220304
  Transmission Date: 20220423
  Serious: Yes (Other)
  Sender: FDA-Public Use
  Company Number: US-GILEAD-2022-0570608

PATIENT
  Age: 54 Year
  Sex: Male
  Weight: 105.2 kg

DRUGS (31)
  1. LEDIPASVIR\SOFOSBUVIR [Suspect]
     Active Substance: LEDIPASVIR\SOFOSBUVIR
     Indication: Chronic hepatitis C
     Dosage: 1 DOSAGE FORM (90/400MG), QD
     Route: 065
     Dates: start: 20181016, end: 20190108
  2. CARVEDILOL [Concomitant]
     Active Substance: CARVEDILOL
  3. DIGOXIN [Concomitant]
     Active Substance: DIGOXIN
  4. MAGNESIUM OXIDE [Concomitant]
     Active Substance: MAGNESIUM OXIDE
  5. TAMSULOSIN [Concomitant]
     Active Substance: TAMSULOSIN
  6. RIBOFLAVIN [Concomitant]
     Active Substance: RIBOFLAVIN
  7. DULOXETINE [Concomitant]
     Active Substance: DULOXETINE
  8. WARFARIN SODIUM [Concomitant]
     Active Substance: WARFARIN SODIUM
  9. PRAVASTATIN [Concomitant]
     Active Substance: PRAVASTATIN
  10. FERROUS GLUCONATE [Concomitant]
     Active Substance: FERROUS GLUCONATE
  11. AMLODIPINE [Concomitant]
     Active Substance: AMLODIPINE BESYLATE
  12. ALENDRONATE [Concomitant]
     Active Substance: ALENDRONATE SODIUM
  13. METOPROLOL SUCCINATE [Concomitant]
     Active Substance: METOPROLOL SUCCINATE
  14. ACETAMINOPHEN [Concomitant]
     Active Substance: ACETAMINOPHEN
  15. PREDNISONE [Concomitant]
     Active Substance: PREDNISONE
  16. VITAMINS NOS [Concomitant]
     Active Substance: VITAMINS
  17. CEFUROXIME [Concomitant]
     Active Substance: CEFUROXIME
  18. FAMOTIDINE [Concomitant]
     Active Substance: FAMOTIDINE
  19. DOBUTAMINE [Concomitant]
     Active Substance: DOBUTAMINE HYDROCHLORIDE
  20. VALGANCICLOVIR HYDROCHLORIDE [Concomitant]
     Active Substance: VALGANCICLOVIR HYDROCHLORIDE
  21. VANCOMYCIN [Concomitant]
     Active Substance: VANCOMYCIN
  22. DOCUSATE SODIUM [Concomitant]
     Active Substance: DOCUSATE SODIUM
  23. TACROLIMUS [Concomitant]
     Active Substance: TACROLIMUS
  24. SULFAMETHOXAZOLE\TRIMETHOPRIM [Concomitant]
     Active Substance: SULFAMETHOXAZOLE\TRIMETHOPRIM
  25. CALCIUM\VITAMIN D [Concomitant]
     Active Substance: CALCIUM\VITAMIN D
  26. NYSTATIN [Concomitant]
     Active Substance: NYSTATIN
  27. HYDRALAZINE [Concomitant]
     Active Substance: HYDRALAZINE HYDROCHLORIDE
  28. MILRINONE [Concomitant]
     Active Substance: MILRINONE
  29. LASIX [Concomitant]
     Active Substance: FUROSEMIDE
  30. CELLCEPT [Concomitant]
     Active Substance: MYCOPHENOLATE MOFETIL
  31. VINATE CARE [Concomitant]
     Active Substance: .ALPHA.-TOCOPHEROL ACETATE, DL-\ASCORBIC ACID\CALCIUM CARBONATE\CHOLECALCIFEROL\CUPRIC OXIDE\FERROUS

REACTIONS (5)
  - Transplant rejection [Unknown]
  - Tick-borne fever [Unknown]
  - Transplant rejection [Unknown]
  - Complications of transplanted heart [Unknown]
  - Haematochezia [Unknown]

NARRATIVE: CASE EVENT DATE: 20181017
